FAERS Safety Report 5847926-X (Version None)
Quarter: 2008Q3

REPORT INFORMATION
  Report Type: 
  Country: None (occurrence: None)
  Receive Date: 20080814
  Receipt Date: 20080814
  Transmission Date: 20090109
  Serious: No
  Sender: FDA-Public Use
  Company Number: None

PATIENT
  Sex: Female
  Weight: 91.6266 kg

DRUGS (2)
  1. LASIX [Suspect]
     Indication: FLUID OVERLOAD
     Dosage: 60 MG Q 8 HRS OTHER (DURATION: FROM NOW TIL THE REST OF -- HER LIFE -- )
     Route: 050
  2. LASIX [Suspect]
     Indication: RENAL FAILURE
     Dosage: 60 MG Q 8 HRS OTHER (DURATION: FROM NOW TIL THE REST OF -- HER LIFE -- )
     Route: 050

REACTIONS (2)
  - SWELLING [None]
  - THERAPEUTIC RESPONSE UNEXPECTED WITH DRUG SUBSTITUTION [None]
